FAERS Safety Report 8347508-4 (Version None)
Quarter: 2012Q2

REPORT INFORMATION
  Report Type: 
  Country: None (occurrence: None)
  Receive Date: 20120509
  Receipt Date: 20120430
  Transmission Date: 20120825
  Serious: Yes (Hospitalization, Other)
  Sender: FDA-Public Use
  Company Number: ES-ASTRAZENECA-2012SE21217

PATIENT
  Age: 39 Year
  Sex: Male

DRUGS (8)
  1. POTASIC LOSARTAN [Concomitant]
     Route: 048
  2. ACENOCUMAROL [Concomitant]
     Route: 048
  3. SIMVASTATIN [Concomitant]
     Route: 048
  4. HIDROCLOROTIAZIDE [Concomitant]
     Route: 048
  5. OMEPRAZOLE [Suspect]
     Route: 048
  6. ATENOLOL [Concomitant]
     Route: 048
  7. ACID ACETYLSALICYLIC [Concomitant]
     Route: 048
  8. AMLODIPINE [Concomitant]
     Route: 048

REACTIONS (2)
  - HYPOMAGNESAEMIA [None]
  - HYPOCALCAEMIA [None]
